FAERS Safety Report 23679539 (Version 1)
Quarter: 2024Q1

REPORT INFORMATION
  Report Type: Spontaneous
  Country: NI (occurrence: NI)
  Receive Date: 20240327
  Receipt Date: 20240327
  Transmission Date: 20240410
  Serious: Yes (Other)
  Sender: FDA-Public Use
  Company Number: NI-BAYER-2024A044330

PATIENT
  Age: 44 Year
  Sex: Female

DRUGS (1)
  1. ULTRAVIST [Suspect]
     Active Substance: IOPROMIDE
     Indication: Scan
     Dosage: UNK, ONCE
     Dates: start: 20240312, end: 20240312

REACTIONS (3)
  - Joint swelling [None]
  - Arthralgia [None]
  - Infusion site extravasation [None]

NARRATIVE: CASE EVENT DATE: 20240312
